FAERS Safety Report 20193836 (Version 1)
Quarter: 2021Q4

REPORT INFORMATION
  Report Type: Spontaneous
  Country: US (occurrence: None)
  Receive Date: 20211215
  Receipt Date: 20211215
  Transmission Date: 20220303
  Serious: Yes (Other)
  Sender: FDA-Public Use
  Company Number: None

PATIENT
  Age: 39 Year
  Sex: Male
  Weight: 96 kg

DRUGS (1)
  1. MODAFINIL [Suspect]
     Active Substance: MODAFINIL
     Indication: Narcolepsy
     Dosage: FREQUENCY : DAILY;?
     Route: 048
     Dates: start: 20070624

REACTIONS (4)
  - Impaired work ability [None]
  - Hypersomnia [None]
  - Narcolepsy [None]
  - Product substitution issue [None]

NARRATIVE: CASE EVENT DATE: 20211117
